FAERS Safety Report 23306426 (Version 1)
Quarter: 2023Q4

REPORT INFORMATION
  Report Type: Spontaneous
  Country: US (occurrence: US)
  Receive Date: 20231218
  Receipt Date: 20231218
  Transmission Date: 20240109
  Serious: No
  Sender: FDA-Public Use
  Company Number: US-BMS-IMIDS-REMS_SI-10851703

PATIENT
  Sex: Male

DRUGS (1)
  1. LENALIDOMIDE [Suspect]
     Active Substance: LENALIDOMIDE
     Indication: Product used for unknown indication
     Dosage: PATIENT WAS TAKING THE LENALIDOMIDE MEDICATION FOR 14 DAYS ON AND 7 DAYS OFF.
     Route: 048
     Dates: start: 20230823

REACTIONS (1)
  - Product dispensing error [Unknown]
